FAERS Safety Report 9890417 (Version 1)
Quarter: 2014Q1

REPORT INFORMATION
  Report Type: Spontaneous
  Country: US (occurrence: US)
  Receive Date: 20140212
  Receipt Date: 20140212
  Transmission Date: 20141002
  Serious: No
  Sender: FDA-Public Use
  Company Number: US-009507513-1402USA000128

PATIENT
  Age: 62 Year
  Sex: Female

DRUGS (3)
  1. ERTAPENEM SODIUM [Suspect]
     Indication: ABSCESS
     Dosage: PLANNED 6 WEEK COURSE
     Route: 042
  2. VANCOMYCIN [Concomitant]
     Indication: ABSCESS
  3. MEROPENEM [Concomitant]
     Indication: ABSCESS

REACTIONS (1)
  - Drug ineffective [Recovered/Resolved]
